FAERS Safety Report 7051127-X (Version None)
Quarter: 2010Q4

REPORT INFORMATION
  Report Type: 
  Country: None (occurrence: None)
  Receive Date: 20101018
  Receipt Date: 20101018
  Transmission Date: 20110411
  Serious: Yes (Other)
  Sender: FDA-Public Use
  Company Number: None

PATIENT
  Sex: Female
  Weight: 65.7716 kg

DRUGS (1)
  1. SEASONIQUE [Suspect]
     Dosage: QD PO
     Route: 048
     Dates: start: 20080901, end: 20100301

REACTIONS (1)
  - VISUAL IMPAIRMENT [None]
